FAERS Safety Report 4574717-2 (Version None)
Quarter: 2005Q1

REPORT INFORMATION
  Report Type: 
  Country: None (occurrence: None)
  Receive Date: 20050208
  Receipt Date: 20040629
  Transmission Date: 20050727
  Serious: No
  Sender: FDA-Public Use
  Company Number: US-GLAXOSMITHKLINE-A0517407A

PATIENT
  Sex: Female

DRUGS (1)
  1. PAXIL [Suspect]
     Indication: DRUG USE FOR UNKNOWN INDICATION
     Dates: start: 20010901, end: 20030501

REACTIONS (5)
  - ADVERSE EVENT [None]
  - AGITATION [None]
  - ANXIETY [None]
  - DRUG WITHDRAWAL SYNDROME [None]
  - TINNITUS [None]
